FAERS Safety Report 24279643 (Version 1)
Quarter: 2024Q3

REPORT INFORMATION
  Report Type: Spontaneous
  Country: US (occurrence: US)
  Receive Date: 20240904
  Receipt Date: 20240904
  Transmission Date: 20241016
  Serious: No
  Sender: CHURCH & DWIGHT
  Company Number: US-ChurchDwight-2024-CDW-01374

PATIENT
  Sex: Female

DRUGS (1)
  1. ORAJEL 4X MEDICATED PM FOR TOOTHACHE AND GUM [Suspect]
     Active Substance: BENZALKONIUM CHLORIDE\BENZOCAINE\MENTHOL\ZINC CATION
     Indication: Toothache
     Dosage: REASONABLE AMOUNT AT LEAST 4 TIMES A DAY
     Route: 061
     Dates: start: 20240815

REACTIONS (3)
  - Headache [Not Recovered/Not Resolved]
  - Nausea [Not Recovered/Not Resolved]
  - Intentional overdose [Unknown]

NARRATIVE: CASE EVENT DATE: 20240815
